FAERS Safety Report 6555721-1 (Version None)
Quarter: 2010Q1

REPORT INFORMATION
  Report Type: 
  Country: None (occurrence: None)
  Receive Date: 20100128
  Receipt Date: 20100122
  Transmission Date: 20100710
  Serious: Yes (Hospitalization)
  Sender: FDA-Public Use
  Company Number: US-BRISTOL-MYERS SQUIBB COMPANY-14438006

PATIENT
  Age: 59 Year
  Sex: Female

DRUGS (25)
  1. ABATACEPT [Suspect]
     Indication: RHEUMATOID ARTHRITIS
     Dosage: 100MG/MONTH IV 23SEP08 TO 10FEB09(IV:COURSES-7); 125MG WK SQ 23-SEP08 TO 03MAR09(SC:COURSES-23)
     Route: 042
     Dates: start: 20080923
  2. PLACEBO [Suspect]
     Indication: RHEUMATOID ARTHRITIS
     Dosage: IV: 23SEP08-10FEB09 SC: 23SEP08-03MAR09
     Route: 058
     Dates: start: 20080923
  3. METHOTREXATE [Concomitant]
     Indication: RHEUMATOID ARTHRITIS
     Route: 058
     Dates: start: 20070129
  4. SIMVASTATIN [Concomitant]
     Indication: HYPERCHOLESTEROLAEMIA
     Dosage: TAKEN AT BED TIME.
     Route: 048
     Dates: start: 20080130
  5. GABAPENTIN [Concomitant]
     Indication: FIBROMYALGIA
     Route: 048
     Dates: start: 20080612
  6. ESTROGENS, CONJUGATED [Concomitant]
     Indication: OESTROGEN REPLACEMENT THERAPY
     Route: 048
     Dates: start: 20080612
  7. HYDROCHLOROTHIAZIDE [Concomitant]
     Indication: HYPERTENSION
     Route: 048
     Dates: start: 20080612
  8. GLUCOPHAGE [Concomitant]
     Indication: DIABETES MELLITUS
     Dosage: 1 DOSAGE FORM = 1 TABLET
     Route: 048
     Dates: start: 20080612
  9. CYCLOBENZAPRINE HCL [Concomitant]
     Indication: FIBROMYALGIA
     Dosage: TAKEN AS BED TIME.
     Route: 048
     Dates: start: 20080612
  10. VITAMIN D [Concomitant]
     Indication: VITAMIN D DEFICIENCY
     Route: 048
     Dates: start: 20080612
  11. FEXOFENADINE HCL [Concomitant]
     Indication: RHINITIS
     Route: 048
     Dates: start: 20080516
  12. PRAMIPEXOLE DIHYDROCHLORIDE [Concomitant]
     Indication: RESTLESS LEGS SYNDROME
     Route: 048
     Dates: start: 20070512
  13. PANTOPRAZOLE SODIUM [Concomitant]
     Indication: GASTROOESOPHAGEAL REFLUX DISEASE
     Route: 048
     Dates: start: 20040601
  14. FOLIC ACID [Concomitant]
     Route: 048
     Dates: start: 20050129
  15. LOTENSIN [Concomitant]
     Indication: HYPERTENSION
     Route: 048
     Dates: start: 20020818
  16. LEVOXYL [Concomitant]
     Indication: HYPOTHYROIDISM
     Route: 048
     Dates: start: 20020818
  17. ERYTHROMYCIN [Concomitant]
     Indication: FOLLICULITIS
     Dosage: SOLUTION 20 MG/ML APPLIED TWICE DAILY
     Route: 061
     Dates: start: 20081021
  18. PREMARIN [Concomitant]
     Dates: start: 20080612
  19. FLEXERIL [Concomitant]
     Dates: start: 20080612
  20. DRISDOL [Concomitant]
     Dosage: 1 DOSAGE FORM = 1 CAP, 50000(UNITS NOT SPECIFIED)
     Dates: start: 20080612
  21. ALLEGRA [Concomitant]
     Dosage: FORMULATION-TABLET
     Dates: start: 20080516
  22. ZOCOR [Concomitant]
     Dosage: FORMULATION-TABLET
     Dates: start: 20080130
  23. MIRAPEX [Concomitant]
     Dosage: FORMULATION-TABLET
     Dates: start: 20070512
  24. PROTONIX [Concomitant]
     Dosage: FORMULATION-TABLET
     Dates: start: 20040601
  25. INSULIN [Concomitant]

REACTIONS (3)
  - ATRIAL FLUTTER [None]
  - PLEURAL EFFUSION [None]
  - SINUS TACHYCARDIA [None]
